FAERS Safety Report 6295350-0 (Version None)
Quarter: 2009Q3

REPORT INFORMATION
  Report Type: 
  Country: None (occurrence: None)
  Receive Date: 20090730
  Receipt Date: 20090721
  Transmission Date: 20100115
  Serious: Yes (Other)
  Sender: FDA-Public Use
  Company Number: DR11092009 (MHRA ADR NO.: ADR 20459652-001)

PATIENT
  Age: 74 Year
  Sex: Female

DRUGS (5)
  1. SIMVASTATIN [Suspect]
     Indication: BLOOD CHOLESTEROL INCREASED
     Dosage: ORAL
     Route: 048
     Dates: end: 20090620
  2. ASPIRIN [Concomitant]
  3. CANDESARTAN-12MG [Concomitant]
  4. CEFALEXIN-250MG [Concomitant]
  5. ACETAMINOPHEN [Concomitant]

REACTIONS (2)
  - BLADDER CANCER [None]
  - BLOOD URINE PRESENT [None]
